FAERS Safety Report 9828579 (Version 1)
Quarter: 2013Q4

REPORT INFORMATION
  Report Type: Spontaneous
  Country: US (occurrence: None)
  Receive Date: 20131120
  Receipt Date: 20131120
  Transmission Date: 20140711
  Serious: No
  Sender: FDA-Public Use
  Company Number: 1000048022

PATIENT
  Age: 42 Year
  Sex: Female

DRUGS (10)
  1. VIIBRYD [Suspect]
     Indication: DEPRESSION
     Route: 048
     Dates: start: 20130811, end: 20130817
  2. VIIBRYD [Suspect]
     Indication: ANXIETY
     Route: 048
     Dates: start: 20130811, end: 20130817
  3. NEURONTIN(GABAPENTIN)(GABAPENTIN) [Concomitant]
  4. NORVASC(AMLODIPINE BESILATE)(AMLODIPINE BESILATE) [Concomitant]
  5. LEVOTHYROXINE(LEVOTHYROXINE SODIUM)(LEVOTHYROXINE SODIUM) [Concomitant]
  6. RELAPAX(DIAZEPAM)(DIAZEPAM) [Concomitant]
  7. CLARITIN(LORATADINE)(LORATADINE) [Concomitant]
  8. SYMBICORT(BUDESONIDE W/FORMOTEROL FUMARATE)(BUDESONIDE W/FORMOTEROL FUMARTE) [Concomitant]
  9. ALBUTEROL SULFATE (SALBUTAMOL SULFATE)(SALBUTAMOL SULFATE) [Concomitant]
  10. LORAZEPAM(LORAZEPAM) [Concomitant]

REACTIONS (1)
  - Paraesthesia [None]
